FAERS Safety Report 13776385 (Version 4)
Quarter: 2017Q4

REPORT INFORMATION
  Report Type: Report from Study
  Country: CA (occurrence: CA)
  Receive Date: 20170721
  Receipt Date: 20171227
  Transmission Date: 20180320
  Serious: Yes (Hospitalization, Other)
  Sender: FDA-Public Use
  Company Number: CA-BRISTOL-MYERS SQUIBB COMPANY-BMS-2017-060275

PATIENT
  Age: 65 Year
  Sex: Female

DRUGS (1)
  1. ABATACEPT [Suspect]
     Active Substance: ABATACEPT
     Indication: RHEUMATOID ARTHRITIS
     Dosage: 750 MG, Q4WK
     Route: 042
     Dates: start: 20170412

REACTIONS (12)
  - Dyspnoea [Unknown]
  - Respiratory disorder [Unknown]
  - Influenza [Unknown]
  - Sputum discoloured [Unknown]
  - Tachypnoea [Unknown]
  - Salivary duct obstruction [Unknown]
  - Cough [Unknown]
  - Pyrexia [Unknown]
  - Skin discolouration [Unknown]
  - Bronchitis [Recovering/Resolving]
  - Oxygen saturation decreased [Unknown]
  - Hyperhidrosis [Unknown]

NARRATIVE: CASE EVENT DATE: 20170714
